FAERS Safety Report 6087753-4 (Version None)
Quarter: 2009Q1

REPORT INFORMATION
  Report Type: 
  Country: None (occurrence: None)
  Receive Date: 20090223
  Receipt Date: 20090213
  Transmission Date: 20090719
  Serious: Yes (Hospitalization)
  Sender: FDA-Public Use
  Company Number: DE-ABBOTT-09P-062-0499354-00

PATIENT
  Sex: Female
  Weight: 63 kg

DRUGS (4)
  1. HUMIRA [Suspect]
     Indication: CROHN'S DISEASE
     Dosage: EVERY OTHER WEEK
     Dates: start: 20080916, end: 20081014
  2. SALOFALK [Concomitant]
     Indication: CROHN'S DISEASE
  3. OMEPRAZOLE [Concomitant]
     Indication: PROPHYLAXIS AGAINST GASTROINTESTINAL ULCER
  4. FERROSANOL [Concomitant]
     Indication: MINERAL SUPPLEMENTATION

REACTIONS (5)
  - COLONIC STENOSIS [None]
  - CROHN'S DISEASE [None]
  - DIARRHOEA [None]
  - GASTROINTESTINAL PERFORATION [None]
  - PAIN [None]
